FAERS Safety Report 5755111-5 (Version None)
Quarter: 2008Q2

REPORT INFORMATION
  Report Type: 
  Country: None (occurrence: None)
  Receive Date: 20080602
  Receipt Date: 20080404
  Transmission Date: 20081010
  Serious: No
  Sender: FDA-Public Use
  Company Number: A0719379A

PATIENT
  Age: 65 Year
  Sex: Female

DRUGS (11)
  1. AUGMENTIN '125' [Suspect]
     Indication: ILL-DEFINED DISORDER
     Dosage: 875MG TWICE PER DAY
     Route: 048
     Dates: start: 20080328
  2. ULTRAM [Concomitant]
  3. GLUCOPHAGE [Concomitant]
  4. LESCOL [Concomitant]
  5. LEVOTHYROXINE SODIUM [Concomitant]
  6. RISPERDAL [Concomitant]
  7. ASPIRIN [Concomitant]
  8. DOCUSATE SODIUM [Concomitant]
  9. ATIVAN [Concomitant]
  10. RAZADYNE [Concomitant]
  11. LITHIUM CARBONATE [Concomitant]

REACTIONS (1)
  - AGITATION [None]
